FAERS Safety Report 6767757-6 (Version None)
Quarter: 2010Q2

REPORT INFORMATION
  Report Type: 
  Country: None (occurrence: None)
  Receive Date: 20100610
  Receipt Date: 20100527
  Transmission Date: 20101027
  Serious: Yes (Other)
  Sender: FDA-Public Use
  Company Number: 012723

PATIENT
  Age: 70 Year
  Sex: Female

DRUGS (2)
  1. KEPPRA [Suspect]
  2. LAMICTAL [Concomitant]

REACTIONS (5)
  - ASTHENIA [None]
  - DEPRESSION [None]
  - FATIGUE [None]
  - SUICIDAL IDEATION [None]
  - URINARY INCONTINENCE [None]
